FAERS Safety Report 15221689 (Version 1)
Quarter: 2018Q3

REPORT INFORMATION
  Report Type: Spontaneous
  Country: US (occurrence: US)
  Receive Date: 20180731
  Receipt Date: 20180731
  Transmission Date: 20181010
  Serious: Yes (Other)
  Sender: FDA-Public Use
  Company Number: US-AKORN PHARMACEUTICALS-2018AKN01079

PATIENT
  Age: 15 Year
  Sex: Male
  Weight: 87.4 kg

DRUGS (1)
  1. MYORISAN [Suspect]
     Active Substance: ISOTRETINOIN
     Indication: ACNE CYSTIC
     Dosage: 40 MG, ^IRREGULARLY TAKING IT TWICE DAILY^
     Route: 048
     Dates: start: 20180118, end: 201806

REACTIONS (3)
  - Suicidal ideation [Recovering/Resolving]
  - Intentional product misuse [Recovered/Resolved]
  - Depression [Recovering/Resolving]

NARRATIVE: CASE EVENT DATE: 2018
